FAERS Safety Report 13322121 (Version 1)
Quarter: 2017Q1

REPORT INFORMATION
  Report Type: Spontaneous
  Country: US (occurrence: US)
  Receive Date: 20170310
  Receipt Date: 20170310
  Transmission Date: 20170428
  Serious: No
  Sender: FDA-Public Use
  Company Number: US-ALK ABELLO INC-1064112

PATIENT
  Sex: Female

DRUGS (1)
  1. VARIOUS UNSPECIFIED ALK ALLERGEN EXTRACTS [Suspect]
     Active Substance: ALLERGENIC EXTRACTS
     Route: 058
     Dates: start: 20161130

REACTIONS (1)
  - Drug interaction [None]
